FAERS Safety Report 17350052 (Version 2)
Quarter: 2020Q1

REPORT INFORMATION
  Report Type: Spontaneous
  Country: ES (occurrence: ES)
  Receive Date: 20200130
  Receipt Date: 20200302
  Transmission Date: 20200409
  Serious: Yes (Other)
  Sender: FDA-Public Use
  Company Number: ES-ROCHE-2400881

PATIENT
  Sex: Female
  Weight: 100 kg

DRUGS (2)
  1. OCREVUS [Suspect]
     Active Substance: OCRELIZUMAB
     Indication: MULTIPLE SCLEROSIS
     Route: 042
     Dates: start: 20170228, end: 20190628
  2. HIDROFEROL [Suspect]
     Active Substance: CALCIFEDIOL
     Indication: VITAMIN D DEFICIENCY
     Route: 048
     Dates: start: 20190101, end: 20190828

REACTIONS (4)
  - Premature rupture of membranes [Unknown]
  - Amniotic cavity infection [Unknown]
  - Premature delivery [Unknown]
  - Maternal exposure before pregnancy [Unknown]
